FAERS Safety Report 11480164 (Version 7)
Quarter: 2017Q1

REPORT INFORMATION
  Report Type: Spontaneous
  Country: BR (occurrence: BR)
  Receive Date: 20150909
  Receipt Date: 20170303
  Transmission Date: 20170428
  Serious: Yes (Disabling, Other)
  Sender: FDA-Public Use
  Company Number: BR-JNJFOC-20150310100

PATIENT
  Age: 65 Year
  Sex: Female
  Weight: 65 kg

DRUGS (7)
  1. SIMPONI [Suspect]
     Active Substance: GOLIMUMAB
     Indication: RHEUMATOID ARTHRITIS
     Route: 058
     Dates: start: 201505, end: 2015
  2. PREDNISONE. [Concomitant]
     Active Substance: PREDNISONE
     Indication: RHEUMATOID ARTHRITIS
     Route: 065
  3. SIMPONI [Suspect]
     Active Substance: GOLIMUMAB
     Indication: RHEUMATOID ARTHRITIS
     Route: 058
     Dates: start: 20140425
  4. SIMPONI [Suspect]
     Active Substance: GOLIMUMAB
     Indication: RHEUMATOID ARTHRITIS
     Route: 058
     Dates: start: 20161219
  5. SIMPONI [Suspect]
     Active Substance: GOLIMUMAB
     Indication: RHEUMATOID ARTHRITIS
     Route: 058
     Dates: start: 20140325
  6. ARAVA [Concomitant]
     Active Substance: LEFLUNOMIDE
     Indication: RHEUMATOID ARTHRITIS
     Route: 065
  7. OSCAL [Concomitant]
     Active Substance: CALCIUM CARBONATE

REACTIONS (37)
  - Product packaging issue [Unknown]
  - Inappropriate schedule of drug administration [Unknown]
  - Needle issue [Unknown]
  - Anaemia [Recovering/Resolving]
  - Dyspnoea [Unknown]
  - Feeding disorder [Unknown]
  - Rheumatoid arthritis [Unknown]
  - Toothache [Not Recovered/Not Resolved]
  - Incorrect product storage [Unknown]
  - Tremor [Unknown]
  - Inappropriate schedule of drug administration [Unknown]
  - Memory impairment [Unknown]
  - Injection site pain [Recovered/Resolved]
  - Influenza [Not Recovered/Not Resolved]
  - Rhinitis [Not Recovered/Not Resolved]
  - Abasia [Unknown]
  - Ulcer [Unknown]
  - Bone atrophy [Unknown]
  - Arthralgia [Not Recovered/Not Resolved]
  - Poor quality drug administered [Unknown]
  - Decreased appetite [Unknown]
  - Joint swelling [Unknown]
  - Weight decreased [Unknown]
  - Limb deformity [Unknown]
  - Visual impairment [Unknown]
  - Joint lock [Unknown]
  - Device malfunction [Unknown]
  - Skin ulcer [Not Recovered/Not Resolved]
  - Varicose ulceration [Unknown]
  - Localised infection [Unknown]
  - Cervical cyst [Unknown]
  - Device malfunction [Unknown]
  - Nausea [Unknown]
  - Phlebitis [Unknown]
  - Wound [Unknown]
  - Elbow deformity [Unknown]
  - Cough [Not Recovered/Not Resolved]

NARRATIVE: CASE EVENT DATE: 2014
